FAERS Safety Report 7422892-4 (Version None)
Quarter: 2011Q2

REPORT INFORMATION
  Report Type: 
  Country: None (occurrence: None)
  Receive Date: 20110419
  Receipt Date: 20110406
  Transmission Date: 20111010
  Serious: Yes (Hospitalization)
  Sender: FDA-Public Use
  Company Number: DE-JNJFOC-20110311928

PATIENT
  Sex: Female
  Weight: 55 kg

DRUGS (8)
  1. PARACETAMOL [Concomitant]
  2. HYDROMORPHONE HCL [Concomitant]
     Indication: POST-TRAUMATIC PAIN
  3. PALEXIA RETARD [Suspect]
     Indication: POST-TRAUMATIC PAIN
     Route: 048
  4. DRONABINOL [Concomitant]
     Indication: POST-TRAUMATIC PAIN
  5. PALEXIA RETARD [Suspect]
     Route: 048
  6. DULOXETINE [Concomitant]
  7. FENTANYL [Concomitant]
     Indication: POST-TRAUMATIC PAIN
  8. ANTIEMETICS AND ANTINAUSEANTS [Concomitant]

REACTIONS (2)
  - DRUG INEFFECTIVE [None]
  - MUSCLE SPASTICITY [None]
